FAERS Safety Report 9900771 (Version 2)
Quarter: 2014Q1

REPORT INFORMATION
  Report Type: Spontaneous
  Country: DE (occurrence: DE)
  Receive Date: 20140217
  Receipt Date: 20140222
  Transmission Date: 20141002
  Serious: Yes (Hospitalization, Other)
  Sender: FDA-Public Use
  Company Number: DE-JNJFOC-20140206708

PATIENT
  Age: 49 Year
  Sex: Female
  Weight: 68 kg

DRUGS (2)
  1. REGAINE FRAUEN [Suspect]
     Route: 061
  2. REGAINE FRAUEN [Suspect]
     Indication: ALOPECIA
     Dosage: TWO BOTTLES TOTAL
     Route: 061
     Dates: start: 20130626, end: 201308

REACTIONS (2)
  - Neoplasm [Not Recovered/Not Resolved]
  - Incorrect dose administered [Unknown]
